FAERS Safety Report 22203734 (Version 2)
Quarter: 2023Q2

REPORT INFORMATION
  Report Type: Spontaneous
  Country: EC (occurrence: EC)
  Receive Date: 20230412
  Receipt Date: 20230421
  Transmission Date: 20230721
  Serious: Yes (Death, Hospitalization, Other)
  Sender: FDA-Public Use
  Company Number: EC-BoehringerIngelheim-2023-BI-230991

PATIENT
  Age: 59 Year
  Sex: Male
  Weight: 114 kg

DRUGS (2)
  1. NINTEDANIB [Suspect]
     Active Substance: NINTEDANIB
     Indication: Pulmonary fibrosis
     Dates: start: 20230314, end: 20230319
  2. NINTEDANIB [Suspect]
     Active Substance: NINTEDANIB
     Dates: start: 20230325, end: 20230410

REACTIONS (4)
  - General physical health deterioration [Fatal]
  - Respiratory failure [Fatal]
  - Cough [Fatal]
  - Off label use [Unknown]

NARRATIVE: CASE EVENT DATE: 20230301
